FAERS Safety Report 5240008-X (Version None)
Quarter: 2007Q1

REPORT INFORMATION
  Report Type: 
  Country: None (occurrence: None)
  Receive Date: 20070216
  Receipt Date: 20070212
  Transmission Date: 20070707
  Serious: Yes (Hospitalization)
  Sender: FDA-Public Use
  Company Number: FR-MERCK-0702FRA00038

PATIENT
  Age: 54 Year
  Sex: Male

DRUGS (6)
  1. INDOCIN [Suspect]
     Indication: ANKYLOSING SPONDYLITIS
     Route: 048
     Dates: start: 20030101
  2. INFLIXIMAB [Suspect]
     Indication: ANKYLOSING SPONDYLITIS
     Route: 042
     Dates: start: 20040129
  3. BROMAZEPAM [Concomitant]
     Indication: ANXIETY
     Route: 048
     Dates: start: 20030101
  4. PERINDOPRIL [Concomitant]
     Indication: HYPERTENSION
     Route: 048
     Dates: start: 20030101
  5. ATORVASTATIN CALCIUM [Concomitant]
     Indication: HYPERCHOLESTEROLAEMIA
     Route: 048
     Dates: start: 20030101
  6. CANDESARTAN [Concomitant]
     Indication: HYPERTENSION
     Route: 048
     Dates: start: 20030101

REACTIONS (2)
  - CHEST PAIN [None]
  - CORONARY ARTERY STENOSIS [None]
